FAERS Safety Report 20867490 (Version 1)
Quarter: 2022Q2

REPORT INFORMATION
  Report Type: Spontaneous
  Country: US (occurrence: US)
  Receive Date: 20220524
  Receipt Date: 20220524
  Transmission Date: 20220721
  Serious: Yes (Other)
  Sender: FDA-Public Use
  Company Number: US-PFIZER INC-202200732404

PATIENT
  Age: 41 Year
  Sex: Female

DRUGS (3)
  1. METHIMAZOLE [Suspect]
     Active Substance: METHIMAZOLE
     Indication: Basedow^s disease
     Dosage: 40 MG, DAILY
     Dates: start: 20130313, end: 20130401
  2. METHIMAZOLE [Suspect]
     Active Substance: METHIMAZOLE
     Dosage: UNK(DESENSITIZED TO MMI)
     Dates: start: 20130410, end: 20130618
  3. METHIMAZOLE [Suspect]
     Active Substance: METHIMAZOLE
     Dosage: UNK(WAS DESENSITIZED TO MMI FOR THE SECOND TIME)
     Dates: start: 20130626, end: 20130906

REACTIONS (2)
  - Urticaria [Unknown]
  - Peripheral swelling [Unknown]

NARRATIVE: CASE EVENT DATE: 20130301
